FAERS Safety Report 5700652-X (Version None)
Quarter: 2008Q2

REPORT INFORMATION
  Report Type: 
  Country: None (occurrence: None)
  Receive Date: 20080407
  Receipt Date: 20080328
  Transmission Date: 20081010
  Serious: Yes (Hospitalization)
  Sender: FDA-Public Use
  Company Number: 2008-01058

PATIENT
  Age: 66 Year
  Sex: Female
  Weight: 47.2 kg

DRUGS (5)
  1. VELCADE [Suspect]
     Indication: AMYLOIDOSIS
     Dosage: INTRAVENOUS
     Route: 042
     Dates: start: 20080212, end: 20080304
  2. DARVOCET-N (PARACETAMOL, DEXTROPROPOXYPHENE NAPSILATE) [Concomitant]
  3. PREDNISONE [Concomitant]
  4. MEGACE [Concomitant]
  5. CARVEDILOL [Concomitant]

REACTIONS (2)
  - OEDEMA PERIPHERAL [None]
  - URINARY TRACT INFECTION [None]
